FAERS Safety Report 9364193 (Version 1)
Quarter: 2013Q2

REPORT INFORMATION
  Report Type: Report from Study
  Country: DE (occurrence: DE)
  Receive Date: 20130624
  Receipt Date: 20130624
  Transmission Date: 20140414
  Serious: Yes (Hospitalization)
  Sender: FDA-Public Use
  Company Number: DE-TEVA-393864USA

PATIENT
  Age: 83 Year
  Sex: Female

DRUGS (28)
  1. BENDAMUSTINE [Suspect]
     Indication: PLASMA CELL MYELOMA
     Route: 042
     Dates: start: 20120906, end: 20120907
  2. BENDAMUSTINE [Suspect]
     Route: 042
     Dates: start: 20121004, end: 20121005
  3. BENDAMUSTINE [Suspect]
     Route: 042
     Dates: start: 20121101, end: 20121102
  4. BENDAMUSTINE [Suspect]
     Route: 042
     Dates: start: 20121129, end: 20121130
  5. BENDAMUSTINE [Suspect]
     Route: 042
     Dates: start: 20130103, end: 20130104
  6. BENDAMUSTINE [Suspect]
     Route: 042
     Dates: start: 20130131, end: 20130201
  7. BORTEZOMIB [Suspect]
     Indication: PLASMA CELL MYELOMA
     Dates: start: 20110702
  8. BORTEZOMIB [Suspect]
     Dates: start: 20110815
  9. BORTEZOMIB [Suspect]
     Dates: start: 20110920
  10. BORTEZOMIB [Suspect]
     Dates: start: 20111114
  11. BORTEZOMIB [Suspect]
     Dates: start: 20111220
  12. BORTEZOMIB [Suspect]
     Dates: start: 20120125
  13. BORTEZOMIB [Suspect]
     Dates: start: 20120315
  14. PREDNISOLONE [Suspect]
     Indication: PLASMA CELL MYELOMA
     Dates: start: 20120906
  15. PREDNISOLONE [Suspect]
     Dates: start: 20121004
  16. PREDNISOLONE [Suspect]
     Dates: start: 20121101
  17. PREDNISOLONE [Suspect]
     Dates: start: 20121129
  18. PREDNISOLONE [Suspect]
     Dates: start: 20130103
  19. PREDNISOLONE [Suspect]
     Dates: start: 20130131
  20. DEXAMETHASON [Suspect]
     Indication: PLASMA CELL MYELOMA
     Dates: start: 20110702
  21. DEXAMETHASON [Suspect]
     Dates: start: 20110815
  22. MELPHALAN [Suspect]
     Indication: PLASMA CELL MYELOMA
     Dates: start: 20110815
  23. MELPHALAN [Suspect]
     Dates: start: 20110920
  24. MELPHALAN [Suspect]
     Dates: start: 20111114
  25. MELPHALAN [Suspect]
     Dates: start: 20111220
  26. MELPHALAN [Suspect]
     Dates: start: 20120125
  27. MELPHALAN [Suspect]
     Dates: start: 20120315
  28. PAMIDRONATE [Concomitant]
     Dates: start: 20120607

REACTIONS (2)
  - Cardiovascular disorder [Unknown]
  - Bronchitis [Recovered/Resolved]
